FAERS Safety Report 11092224 (Version 5)
Quarter: 2015Q4

REPORT INFORMATION
  Report Type: Spontaneous
  Country: US (occurrence: US)
  Receive Date: 20150506
  Receipt Date: 20151228
  Transmission Date: 20160304
  Serious: Yes (Hospitalization)
  Sender: FDA-Public Use
  Company Number: US-BAYER-2015-179105

PATIENT
  Age: 21 Year
  Sex: Female
  Weight: 64.85 kg

DRUGS (19)
  1. HUMALOG PEN MIX [Concomitant]
     Dosage: 100 UNITS/ML FOR EVERY 25 OVER 150 TAKE ONE UNIT; FOR CARBS 1 UNIT EVERY 5 GRAMS.
     Route: 058
     Dates: start: 20130309
  2. ZOFRAN [Concomitant]
     Active Substance: ONDANSETRON HYDROCHLORIDE
  3. NITROGLYCERIN. [Concomitant]
     Active Substance: NITROGLYCERIN
  4. METOPROLOL [Concomitant]
     Active Substance: METOPROLOL
  5. IBUPROFEN. [Concomitant]
     Active Substance: IBUPROFEN
  6. MOTRIN [Suspect]
     Active Substance: IBUPROFEN
  7. YAZ [Suspect]
     Active Substance: DROSPIRENONE\ETHINYL ESTRADIOL
     Indication: CONTRACEPTION
  8. PRILOSEC [Concomitant]
     Active Substance: OMEPRAZOLE MAGNESIUM
     Indication: GASTROOESOPHAGEAL REFLUX DISEASE
     Dosage: UNK
     Dates: start: 20130309
  9. DOCUSATE [Concomitant]
     Active Substance: DOCUSATE
  10. FAMOTIDINE. [Concomitant]
     Active Substance: FAMOTIDINE
     Dosage: 10 MG, QD
     Route: 048
     Dates: start: 20130309
  11. YASMIN [Suspect]
     Active Substance: DROSPIRENONE\ETHINYL ESTRADIOL
  12. BEYAZ [Suspect]
     Active Substance: DROSPIRENONE\ETHINYL ESTRADIOL\LEVOMEFOLATE CALCIUM
  13. LANTUS [Concomitant]
     Active Substance: INSULIN GLARGINE
  14. PREDNISONE. [Concomitant]
     Active Substance: PREDNISONE
  15. LORTAB [Concomitant]
     Active Substance: ACETAMINOPHEN\HYDROCODONE BITARTRATE
     Indication: PAIN
     Dosage: 5/500
     Route: 048
     Dates: start: 20130309
  16. MORPHINE [Concomitant]
     Active Substance: MORPHINE
  17. NORCO [Concomitant]
     Active Substance: ACETAMINOPHEN\HYDROCODONE BITARTRATE
  18. LISINOPRIL. [Concomitant]
     Active Substance: LISINOPRIL
     Dosage: 10 MG, QD
     Route: 048
     Dates: start: 20130309
  19. INSULIN [Concomitant]
     Active Substance: INSULIN NOS
     Dosage: 37 UNITS AT BED TIME
     Route: 058
     Dates: start: 20130309

REACTIONS (7)
  - Chest pain [Recovering/Resolving]
  - Heart injury [None]
  - Injury [Recovered/Resolved]
  - Pulmonary embolism [Recovered/Resolved]
  - Myocarditis infectious [Recovering/Resolving]
  - Vaginal haemorrhage [None]
  - Myocardial infarction [None]

NARRATIVE: CASE EVENT DATE: 20130307
